FAERS Safety Report 6169302-5 (Version None)
Quarter: 2009Q2

REPORT INFORMATION
  Report Type: 
  Country: None (occurrence: None)
  Receive Date: 20090424
  Receipt Date: 20090409
  Transmission Date: 20091009
  Serious: Yes (Other)
  Sender: FDA-Public Use
  Company Number: 2009001097

PATIENT
  Age: 76 Year
  Sex: Female

DRUGS (4)
  1. ERLOTINIB (ERLOTINIB) (TABLET) (ERLOTINIB) [Suspect]
     Indication: LUNG ADENOCARCINOMA
     Dosage: (150 MG, QD), ORAL
     Route: 048
     Dates: start: 20090122, end: 20090217
  2. CANDESARTAN CILEXETIL [Suspect]
     Indication: HYPERTENSION
     Dosage: (8 MG, QD), ORAL
     Route: 048
     Dates: start: 20090210, end: 20090217
  3. MAGNESIUM OXIDE (MAGNESIUM OXIDE) [Concomitant]
  4. VOLTAREN [Concomitant]

REACTIONS (5)
  - HEPATIC ENZYME INCREASED [None]
  - HYPERTENSION [None]
  - LIVER DISORDER [None]
  - PLATELET COUNT DECREASED [None]
  - RASH [None]
